FAERS Safety Report 9221245 (Version 1)
Quarter: 2013Q2

REPORT INFORMATION
  Report Type: Spontaneous
  Country: DE (occurrence: DE)
  Receive Date: 20130410
  Receipt Date: 20130410
  Transmission Date: 20140414
  Serious: Yes (Hospitalization)
  Sender: FDA-Public Use
  Company Number: DE-BIOGENIDEC-2013BI030827

PATIENT
  Age: 53 Year
  Sex: Male
  Weight: 105 kg

DRUGS (1)
  1. AVONEX [Suspect]
     Indication: MULTIPLE SCLEROSIS
     Route: 030
     Dates: start: 20110801

REACTIONS (2)
  - Hypertension [Recovered/Resolved]
  - Facial paresis [Recovered/Resolved]
